FAERS Safety Report 4385373-0 (Version None)
Quarter: 2004Q2

REPORT INFORMATION
  Report Type: 
  Country: None (occurrence: None)
  Receive Date: 20040622
  Receipt Date: 20040610
  Transmission Date: 20050107
  Serious: Yes (Death)
  Sender: FDA-Public Use
  Company Number: US-JNJFOC-20040603022

PATIENT
  Age: 51 Year
  Sex: Male

DRUGS (2)
  1. DURAGESIC [Suspect]
     Indication: INTENTIONAL MISUSE
     Dosage: 25 UG/HR INTRAVENOUS
     Route: 042
     Dates: start: 20040501, end: 20040501
  2. DURAGESIC [Suspect]
     Indication: INTENTIONAL MISUSE
     Dosage: 25 UG/HR INTRAVENOUS
     Route: 042
     Dates: start: 20040501

REACTIONS (10)
  - APNOEA [None]
  - BRAIN DEATH [None]
  - CARDIAC ARREST [None]
  - CYANOSIS [None]
  - DRUG TOXICITY [None]
  - INTENTIONAL MISUSE [None]
  - LOBAR PNEUMONIA [None]
  - LOSS OF CONSCIOUSNESS [None]
  - PULSE PRESSURE DECREASED [None]
  - SNORING [None]
